FAERS Safety Report 7377482-9 (Version None)
Quarter: 2011Q1

REPORT INFORMATION
  Report Type: 
  Country: None (occurrence: None)
  Receive Date: 20110328
  Receipt Date: 20110314
  Transmission Date: 20110831
  Serious: Yes (Hospitalization)
  Sender: FDA-Public Use
  Company Number: PHHO2010PE16230

PATIENT
  Sex: Male
  Weight: 54.8 kg

DRUGS (9)
  1. COMPARATOR ENALAPRIL [Suspect]
     Indication: CARDIAC FAILURE
     Dosage: UNK
     Route: 048
     Dates: start: 20100824
  2. BLINDED ENALAPRIL [Suspect]
     Indication: CARDIAC FAILURE
     Dosage: CODE NOT BROKEN
     Route: 048
     Dates: start: 20100922, end: 20100924
  3. BLINDED ALISKIREN [Suspect]
     Indication: CARDIAC FAILURE
     Dosage: CODE NOT BROKEN
     Route: 048
     Dates: start: 20100922, end: 20100924
  4. BLINDED NO TREATMENT RECEIVED [Suspect]
     Indication: CARDIAC FAILURE
     Dosage: CODE NOT BROKEN
     Route: 048
     Dates: start: 20100922, end: 20100924
  5. ACETYLSALICYLIC ACID [Suspect]
     Indication: THROMBOSIS PROPHYLAXIS
  6. ALISKIREN [Suspect]
     Indication: CARDIAC FAILURE
  7. CHLORPHENIRAMINE MALEATE [Concomitant]
     Indication: NASOPHARYNGITIS
  8. PARACETAMOL [Concomitant]
     Indication: NASOPHARYNGITIS
  9. DEXTROMETHORPHAN HYDROBROMIDE [Concomitant]
     Indication: COUGH

REACTIONS (4)
  - TACHYARRHYTHMIA [None]
  - URINARY TRACT INFECTION [None]
  - RENAL CYST [None]
  - HAEMATURIA [None]
